FAERS Safety Report 8825358 (Version 1)
Quarter: 2012Q4

REPORT INFORMATION
  Report Type: 
  Country: US (occurrence: US)
  Receive Date: 20121004
  Receipt Date: 20121004
  Transmission Date: 20130627
  Serious: No
  Sender: FDA-Public Use
  Company Number: US-VERTEX PHARMACEUTICAL INC.-2012-021243

PATIENT
  Age: 62 Year
  Sex: Male
  Weight: 78 kg

DRUGS (7)
  1. VX-950 [Suspect]
     Indication: HEPATITIS C
     Dosage: 750 mg, tid
     Route: 048
  2. PEGASYS [Concomitant]
     Indication: HEPATITIS C
     Dosage: 180 ?g, UNK
  3. RIBAVIRIN [Concomitant]
     Dosage: 200 mg, UNK
  4. LEVOTHYROXIN [Concomitant]
     Dosage: 50 ?g, UNK
  5. AMITRIPTYLIN [Concomitant]
     Dosage: 50 mg, UNK
  6. MULTIVITAMIN                       /00097801/ [Concomitant]
  7. TRAZODONE [Concomitant]
     Dosage: 100 mg, UNK

REACTIONS (1)
  - Anaemia [Unknown]
